FAERS Safety Report 9122693 (Version 1)
Quarter: 2013Q1

REPORT INFORMATION
  Report Type: Spontaneous
  Country: US (occurrence: US)
  Receive Date: 20130115
  Receipt Date: 20130115
  Transmission Date: 20140127
  Serious: No
  Sender: FDA-Public Use
  Company Number: US-PFIZER INC-2013013470

PATIENT
  Age: 31 Year
  Sex: Male
  Weight: 114.29 kg

DRUGS (5)
  1. PROTONIX [Suspect]
     Indication: GASTROOESOPHAGEAL REFLUX DISEASE
     Dosage: 40 MG, 1X/DAY
     Route: 048
  2. PRILOSEC [Concomitant]
     Dosage: UNK
  3. AZITHROMYCIN [Concomitant]
     Dosage: UNK
     Dates: start: 201204
  4. PREDNISONE [Concomitant]
     Dosage: UNK
     Dates: start: 201204
  5. DOXINE [Concomitant]
     Dosage: UNK
     Dates: start: 201205

REACTIONS (1)
  - Drug screen false positive [Unknown]
